FAERS Safety Report 19508155 (Version 2)
Quarter: 2021Q3

REPORT INFORMATION
  Report Type: Report from Study
  Country: FR (occurrence: FR)
  Receive Date: 20210708
  Receipt Date: 20210824
  Transmission Date: 20211014
  Serious: Yes (Hospitalization, Other)
  Sender: FDA-Public Use
  Company Number: FR-TAKEDA-2021TUS041048

PATIENT
  Age: 70 Year
  Sex: Male

DRUGS (8)
  1. TOUJEO [Concomitant]
     Active Substance: INSULIN GLARGINE
     Indication: DIABETES MELLITUS
     Dosage: 18 INTERNATIONAL UNIT, QD
     Route: 058
     Dates: start: 20210416
  2. NOVORAPID [Concomitant]
     Active Substance: INSULIN ASPART
     Dosage: 12 INTERNATIONAL UNIT, AS PER PN FREQUENCY
     Route: 051
     Dates: start: 20201208, end: 20210624
  3. TEDUGLUTIDE [Suspect]
     Active Substance: TEDUGLUTIDE
     Indication: SHORT-BOWEL SYNDROME
     Dosage: 3 MILLIGRAM, QD (0.05 MG/KG), 7 DOSES PER WEEK
     Route: 065
     Dates: start: 20180625, end: 20200520
  4. ASPEGIC [Concomitant]
     Indication: PAIN PROPHYLAXIS
     Dosage: 100 MILLIGRAM, BID
     Route: 048
  5. TEDUGLUTIDE [Suspect]
     Active Substance: TEDUGLUTIDE
     Indication: SHORT-BOWEL SYNDROME
     Dosage: 3 MILLIGRAM, QD (0.05 MG/KG), 7 DOSES PER WEEK
     Route: 065
     Dates: start: 20180625, end: 20200520
  6. TEDUGLUTIDE [Suspect]
     Active Substance: TEDUGLUTIDE
     Indication: SHORT-BOWEL SYNDROME
     Dosage: 3 MILLIGRAM, QD (0.05 MG/KG), 7 DOSES PER WEEK
     Route: 065
     Dates: start: 20180625, end: 20200520
  7. TEDUGLUTIDE [Suspect]
     Active Substance: TEDUGLUTIDE
     Indication: SHORT-BOWEL SYNDROME
     Dosage: 3 MILLIGRAM, QD (0.05 MG/KG), 7 DOSES PER WEEK
     Route: 065
     Dates: start: 20180625, end: 20200520
  8. NOVORAPID [Concomitant]
     Active Substance: INSULIN ASPART
     Indication: DIABETES MELLITUS
     Dosage: 15 INTERNATIONAL UNIT, AS PER PN FREQUENCY
     Route: 051
     Dates: start: 20210625

REACTIONS (1)
  - Hepatocellular carcinoma [Recovered/Resolved]

NARRATIVE: CASE EVENT DATE: 20201222
